FAERS Safety Report 6569733-5 (Version None)
Quarter: 2010Q1

REPORT INFORMATION
  Report Type: 
  Country: None (occurrence: None)
  Receive Date: 20100203
  Receipt Date: 20100203
  Transmission Date: 20100710
  Serious: Yes (Other)
  Sender: FDA-Public Use
  Company Number: None

PATIENT
  Sex: Female
  Weight: 105.2799 kg

DRUGS (1)
  1. DIPHENOXYLATE HCL + ATROPINE SULFATE [Suspect]
     Indication: DIARRHOEA
     Dosage: 2.5 MG QID PRN PO
     Route: 048
     Dates: start: 20091231

REACTIONS (3)
  - ABDOMINAL DISTENSION [None]
  - ABDOMINAL PAIN [None]
  - NO THERAPEUTIC RESPONSE [None]
